FAERS Safety Report 9235988 (Version 1)
Quarter: 2013Q1

REPORT INFORMATION
  Report Type: Spontaneous
  Country: US (occurrence: None)
  Receive Date: 20121031
  Receipt Date: 20121031
  Transmission Date: 20140127
  Serious: Yes (Other)
  Sender: FDA-Public Use
  Company Number: PHEH2012US011877

PATIENT
  Age: 36 Year
  Sex: Female
  Weight: 51.7 kg

DRUGS (2)
  1. GILENYA [Suspect]
     Route: 048
     Dates: start: 20110912, end: 201205
  2. ABILITY (ARIPIPRAZOLE) TABLET 5MG [Concomitant]

REACTIONS (2)
  - Depressed mood [None]
  - Drug ineffective [None]
